FAERS Safety Report 26032754 (Version 1)
Quarter: 2025Q4

REPORT INFORMATION
  Report Type: Spontaneous
  Country: US (occurrence: US)
  Receive Date: 20251112
  Receipt Date: 20251112
  Transmission Date: 20260118
  Serious: Yes (Hospitalization)
  Sender: STRIDES
  Company Number: US-STRIDES PHARMA UK LTD.-2025SP013993

PATIENT

DRUGS (1)
  1. IBUPROFEN [Suspect]
     Active Substance: IBUPROFEN
     Indication: Thermal burn
     Dosage: 600 MILLIGRAM EVERY 6HOUR BEFORE AND AFTER SURGERY
     Route: 065

REACTIONS (2)
  - Seroma [Unknown]
  - Off label use [Unknown]
